FAERS Safety Report 5620350-0 (Version None)
Quarter: 2008Q1

REPORT INFORMATION
  Report Type: 
  Country: None (occurrence: None)
  Receive Date: 20080208
  Receipt Date: 20080130
  Transmission Date: 20080703
  Serious: Yes (Hospitalization)
  Sender: FDA-Public Use
  Company Number: ES-ELI_LILLY_AND_COMPANY-ES200801006475

PATIENT
  Age: 49 Year
  Sex: Female

DRUGS (1)
  1. ALIMTA [Suspect]
     Indication: MESOTHELIOMA
     Dosage: 500 MG, UNKNOWN
     Route: 042
     Dates: start: 20070101, end: 20070901

REACTIONS (1)
  - MYOCARDIAL INFARCTION [None]
